FAERS Safety Report 16705856 (Version 1)
Quarter: 2019Q4

REPORT INFORMATION
  Report Type: Spontaneous
  Country: US (occurrence: US)
  Receive Date: 20190814
  Receipt Date: 20190814
  Transmission Date: 20200122
  Serious: Yes (Death)
  Sender: FDA-Public Use
  Company Number: None

PATIENT
  Age: 61 Year
  Sex: Female
  Weight: 76.5 kg

DRUGS (14)
  1. LABETOLOL [Concomitant]
     Active Substance: LABETALOL HYDROCHLORIDE
  2. MARINOL [Concomitant]
     Active Substance: DRONABINOL
  3. GABAPENTIN. [Concomitant]
     Active Substance: GABAPENTIN
  4. METHOCARBAMOL. [Concomitant]
     Active Substance: METHOCARBAMOL
  5. ISOSORBIDE. [Concomitant]
     Active Substance: ISOSORBIDE
  6. RENVELA [Concomitant]
     Active Substance: SEVELAMER CARBONATE
  7. ONDANSETRON [Concomitant]
     Active Substance: ONDANSETRON
  8. OXYCODON/APAP [Concomitant]
  9. PIQRAY [Suspect]
     Active Substance: ALPELISIB
     Indication: BREAST CANCER
     Route: 048
     Dates: start: 20190716
  10. CLONIDINE. [Concomitant]
     Active Substance: CLONIDINE
  11. NIFEDIPINE. [Concomitant]
     Active Substance: NIFEDIPINE
  12. CARVEDILOL. [Concomitant]
     Active Substance: CARVEDILOL
  13. DEXAMETHASONE. [Concomitant]
     Active Substance: DEXAMETHASONE
  14. LINZESS [Concomitant]
     Active Substance: LINACLOTIDE

REACTIONS (1)
  - Death [None]

NARRATIVE: CASE EVENT DATE: 20190808
